FAERS Safety Report 7886498-5 (Version None)
Quarter: 2011Q4

REPORT INFORMATION
  Report Type: 
  Country: None (occurrence: None)
  Receive Date: 20111102
  Receipt Date: 20110707
  Transmission Date: 20120403
  Serious: No
  Sender: FDA-Public Use
  Company Number: US-AMGEN-USASP2011034633

PATIENT
  Sex: Female

DRUGS (1)
  1. ENBREL [Suspect]
     Indication: ANKYLOSING SPONDYLITIS
     Dosage: 50 MG, QWK
     Dates: start: 20110501

REACTIONS (11)
  - ARTHRALGIA [None]
  - INJECTION SITE REACTION [None]
  - EYE IRRITATION [None]
  - BACK PAIN [None]
  - INJECTION SITE SWELLING [None]
  - INJECTION SITE WARMTH [None]
  - INJECTION SITE PRURITUS [None]
  - DRY EYE [None]
  - INJECTION SITE PAIN [None]
  - PAIN IN EXTREMITY [None]
  - HEADACHE [None]
